FAERS Safety Report 12677936 (Version 1)
Quarter: 2016Q3

REPORT INFORMATION
  Report Type: Spontaneous
  Country: US (occurrence: US)
  Receive Date: 20160823
  Receipt Date: 20160823
  Transmission Date: 20161109
  Serious: Yes (Other)
  Sender: FDA-Public Use
  Company Number: US-BAXALTA-2016BLT006035

PATIENT
  Age: 2 Year
  Sex: Male

DRUGS (5)
  1. ADVATE [Suspect]
     Active Substance: ANTIHEMOPHILIC FACTOR, HUMAN RECOMBINANT
     Dosage: 731 U, UNK, TREATMENT FOR BLEEDING EVENT
     Route: 042
     Dates: start: 20160815, end: 20160817
  2. ADVATE [Suspect]
     Active Substance: ANTIHEMOPHILIC FACTOR, HUMAN RECOMBINANT
     Indication: FACTOR VIII DEFICIENCY
     Dosage: 731 U, 1X A WEEK, WEDNESDAY - PROPHYLAXIS
     Route: 042
  3. ADVATE [Suspect]
     Active Substance: ANTIHEMOPHILIC FACTOR, HUMAN RECOMBINANT
     Dosage: 731 U, UNK, TREATMENT FOR BLEEDING EVENT
     Route: 042
     Dates: start: 20160807, end: 20160809
  4. ADVATE [Suspect]
     Active Substance: ANTIHEMOPHILIC FACTOR, HUMAN RECOMBINANT
     Dosage: 731 U, 2X A WEEK, MONDAY AND THURSDAY, PROPHYLAXIS
     Route: 042
     Dates: start: 20160808
  5. ADVATE [Suspect]
     Active Substance: ANTIHEMOPHILIC FACTOR, HUMAN RECOMBINANT
     Dosage: 731 U, 2X A WEEK, PROPHYLAXIS
     Route: 042
     Dates: start: 20160811

REACTIONS (3)
  - Haemarthrosis [Recovering/Resolving]
  - Ear infection [Recovering/Resolving]
  - Haemarthrosis [Recovering/Resolving]

NARRATIVE: CASE EVENT DATE: 201608
